FAERS Safety Report 13391531 (Version 1)
Quarter: 2017Q1

REPORT INFORMATION
  Report Type: Other
  Country: DK (occurrence: DK)
  Receive Date: 20170331
  Receipt Date: 20170331
  Transmission Date: 20170429
  Serious: Yes (Other)
  Sender: FDA-Public Use
  Company Number: DK-CELLTRION INC.-2015DK011206

PATIENT

DRUGS (6)
  1. ENTOCORT [Concomitant]
     Active Substance: BUDESONIDE
     Dosage: 3 MG, TID
     Dates: start: 201502
  2. REMSIMA [Suspect]
     Active Substance: INFLIXIMAB
     Dosage: 5 MG/KG BODY WEIGHT WEEKS 0, 2 AND 6 AND THEN EVERY 8 WEEKS
     Route: 042
     Dates: start: 20150604, end: 20150604
  3. VITAMIN D                          /00107901/ [Concomitant]
     Active Substance: ERGOCALCIFEROL
     Dosage: UNK
     Dates: start: 201502
  4. REMSIMA [Suspect]
     Active Substance: INFLIXIMAB
     Dosage: 5 MG/KG BODY WEIGHT WEEKS 0, 2 AND 6 AND THEN EVERY 8 WEEKS
     Route: 042
     Dates: start: 20150423, end: 20150423
  5. PURINETHOL [Concomitant]
     Active Substance: MERCAPTOPURINE
     Dosage: 50 MG, VERY 2ND DAY, 50 MG X 2 EVERY 2ND DAY.
     Dates: start: 201503
  6. REMSIMA [Suspect]
     Active Substance: INFLIXIMAB
     Indication: CROHN^S DISEASE
     Dosage: 5 MG/KG BODY WEIGHT WEEKS 0, 2 AND 6 AND THEN EVERY 8 WEEKS
     Route: 042
     Dates: start: 20150409, end: 20150409

REACTIONS (20)
  - Nervous system disorder [Recovering/Resolving]
  - Abdominal pain upper [Recovered/Resolved]
  - Arthralgia [Unknown]
  - Decreased appetite [Unknown]
  - Neuralgia [Unknown]
  - Asthenia [Recovering/Resolving]
  - Sensory disturbance [Recovering/Resolving]
  - Dizziness [Unknown]
  - Balance disorder [Unknown]
  - Urinary retention [Recovering/Resolving]
  - Neuritis [Unknown]
  - Hypoaesthesia [Unknown]
  - Fatigue [Unknown]
  - Pain in extremity [Unknown]
  - Vomiting [Unknown]
  - Muscular weakness [Recovering/Resolving]
  - Nausea [Unknown]
  - Influenza like illness [Unknown]
  - Abdominal pain lower [Unknown]
  - Osteoarthritis [Unknown]

NARRATIVE: CASE EVENT DATE: 2015
